FAERS Safety Report 19264116 (Version 1)
Quarter: 2021Q2

REPORT INFORMATION
  Report Type: Spontaneous
  Country: NZ (occurrence: NZ)
  Receive Date: 20210517
  Receipt Date: 20210517
  Transmission Date: 20210717
  Serious: Yes (Hospitalization)
  Sender: FDA-Public Use
  Company Number: NZ-MYLANLABS-2021M1028188

PATIENT
  Age: 43 Year
  Sex: Male

DRUGS (2)
  1. CLOZARIL [Suspect]
     Active Substance: CLOZAPINE
     Indication: SCHIZOPHRENIA
     Dosage: 100 MILLIGRAM
     Route: 048
     Dates: start: 20011204
  2. CLOZARIL [Suspect]
     Active Substance: CLOZAPINE
     Dosage: 250 MILLIGRAM, QD

REACTIONS (2)
  - Hospitalisation [Unknown]
  - Product dose omission issue [Unknown]

NARRATIVE: CASE EVENT DATE: 202104
